FAERS Safety Report 23312682 (Version 1)
Quarter: 2023Q4

REPORT INFORMATION
  Report Type: Report from Study
  Country: US (occurrence: US)
  Receive Date: 20231219
  Receipt Date: 20231219
  Transmission Date: 20240109
  Serious: Yes (Hospitalization, Other)
  Sender: FDA-Public Use
  Company Number: US-ULTRAGENYX PHARMACEUTICAL INC.-US-UGX-23-01587

PATIENT

DRUGS (1)
  1. DOJOLVI [Suspect]
     Active Substance: TRIHEPTANOIN
     Indication: Fatty acid oxidation disorder
     Dosage: 2 MILLILITER, QD; VIA G-TUBE
     Dates: start: 202201

REACTIONS (2)
  - Seizure [Unknown]
  - Sudden visual loss [Unknown]
